FAERS Safety Report 12162814 (Version 3)
Quarter: 2016Q2

REPORT INFORMATION
  Report Type: Report from Study
  Country: ZA (occurrence: ZA)
  Receive Date: 20160309
  Receipt Date: 20160503
  Transmission Date: 20160815
  Serious: Yes (Other)
  Sender: FDA-Public Use
  Company Number: ZA-APOPHARMA USA, INC.-2016AP006813

PATIENT

DRUGS (2)
  1. DEFERIPRONE [Suspect]
     Active Substance: DEFERIPRONE
     Indication: HIV INFECTION
     Dosage: 2000 MG, QD
     Route: 042
     Dates: start: 20160201, end: 20160210
  2. DEFERIPRONE [Suspect]
     Active Substance: DEFERIPRONE
     Indication: HIV INFECTION
     Dosage: 2000 MG, QD
     Route: 042
     Dates: start: 20160201, end: 20160210

REACTIONS (2)
  - Thrombocytopenia [Recovered/Resolved]
  - Neutropenia [Recovered/Resolved]

NARRATIVE: CASE EVENT DATE: 20160224
